FAERS Safety Report 18997799 (Version 1)
Quarter: 2021Q1

REPORT INFORMATION
  Report Type: Spontaneous
  Country: PT (occurrence: PT)
  Receive Date: 20210311
  Receipt Date: 20210311
  Transmission Date: 20210420
  Serious: Yes (Congenital Anomaly, Other)
  Sender: FDA-Public Use
  Company Number: PT-MYLANLABS-2021M1014088

PATIENT
  Sex: Female

DRUGS (2)
  1. TRAMADOL. [Suspect]
     Active Substance: TRAMADOL
     Indication: URINARY TRACT INFECTION
     Dosage: UNK
     Route: 015
  2. AMOXICILLIN/CLAVULANIC ACID [Suspect]
     Active Substance: AMOXICILLIN\CLAVULANIC ACID
     Indication: URINARY TRACT INFECTION
     Dosage: UNK
     Route: 015

REACTIONS (3)
  - Foetal exposure during pregnancy [Recovered/Resolved]
  - Moebius II syndrome [Unknown]
  - Congenital hypoplasia of depressor angularis oris muscle [Unknown]
